FAERS Safety Report 11196569 (Version 1)
Quarter: 2015Q2

REPORT INFORMATION
  Report Type: Spontaneous
  Country: US (occurrence: None)
  Receive Date: 20150616
  Receipt Date: 20150616
  Transmission Date: 20150821
  Serious: Yes (Life-Threatening, Other)
  Sender: FDA-Public Use
  Company Number: None

PATIENT
  Age: 46 Year
  Sex: Male
  Weight: 72.58 kg

DRUGS (7)
  1. VITAMIN C [Concomitant]
     Active Substance: ASCORBIC ACID
  2. VITAMIN A [Concomitant]
     Active Substance: VITAMIN A
  3. MEDICATIONS FOR HEART TRANSPLANT [Concomitant]
  4. VITAMIN D [Concomitant]
     Active Substance: CHOLECALCIFEROL
  5. LVAD [Concomitant]
  6. MAGNESIUM [Concomitant]
     Active Substance: MAGNESIUM
  7. BORTEZOMIB [Suspect]
     Active Substance: BORTEZOMIB
     Indication: PRODUCT USED FOR UNKNOWN INDICATION
     Dosage: EVERY OTHER PLASMA INTO A VEIN
     Route: 042
     Dates: start: 20150421

REACTIONS (2)
  - Unevaluable event [None]
  - Central nervous system lesion [None]

NARRATIVE: CASE EVENT DATE: 20150428
